FAERS Safety Report 13949422 (Version 1)
Quarter: 2017Q3

REPORT INFORMATION
  Report Type: Spontaneous
  Country: US (occurrence: US)
  Receive Date: 20170908
  Receipt Date: 20170908
  Transmission Date: 20171128
  Serious: No
  Sender: FDA-Public Use
  Company Number: US-ROCHE-1167011

PATIENT
  Sex: Female

DRUGS (1)
  1. RITUXAN [Suspect]
     Active Substance: RITUXIMAB
     Indication: RHEUMATOID ARTHRITIS
     Route: 042

REACTIONS (5)
  - Malaise [Recovered/Resolved with Sequelae]
  - Fatigue [Recovering/Resolving]
  - Influenza like illness [Recovered/Resolved with Sequelae]
  - Sjogren^s syndrome [Recovered/Resolved with Sequelae]
  - Abnormal sensation in eye [Recovered/Resolved with Sequelae]
